FAERS Safety Report 18278698 (Version 1)
Quarter: 2020Q3

REPORT INFORMATION
  Report Type: Spontaneous
  Country: US (occurrence: US)
  Receive Date: 20200917
  Receipt Date: 20200917
  Transmission Date: 20201103
  Serious: Yes (Other)
  Sender: FDA-Public Use
  Company Number: US-JAZZ-2020-US-011701

PATIENT
  Sex: Female

DRUGS (3)
  1. SUNOSI [Suspect]
     Active Substance: SOLRIAMFETOL
     Dosage: 75 MILLIGRAM, QD
  2. SUNOSI [Suspect]
     Active Substance: SOLRIAMFETOL
     Indication: SOMNOLENCE
     Dosage: 150 MILLIGRAM, QD
  3. SUNOSI [Suspect]
     Active Substance: SOLRIAMFETOL
     Dosage: 37.5 MILLIGRAM, QD

REACTIONS (1)
  - Seizure [Recovered/Resolved]
